FAERS Safety Report 5383274-2 (Version None)
Quarter: 2007Q3

REPORT INFORMATION
  Report Type: 
  Country: None (occurrence: None)
  Receive Date: 20070710
  Receipt Date: 20070704
  Transmission Date: 20080115
  Serious: Yes (Hospitalization)
  Sender: FDA-Public Use
  Company Number: JP-ELI_LILLY_AND_COMPANY-JP200706004331

PATIENT
  Age: 57 Year
  Sex: Male

DRUGS (2)
  1. KEFRAL [Suspect]
     Indication: TOOTH INFECTION
     Dosage: UNK, UNKNOWN
     Route: 065
     Dates: start: 20060801
  2. MEFENAMIC ACID [Concomitant]
     Indication: TOOTH INFECTION
     Dosage: UNK, UNKNOWN
     Route: 065
     Dates: start: 20060801

REACTIONS (2)
  - EMPHYSEMATOUS CHOLECYSTITIS [None]
  - THROMBOTIC THROMBOCYTOPENIC PURPURA [None]
